FAERS Safety Report 14579218 (Version 1)
Quarter: 2018Q1

REPORT INFORMATION
  Report Type: Spontaneous
  Country: FR (occurrence: FR)
  Receive Date: 20180227
  Receipt Date: 20180227
  Transmission Date: 20180509
  Serious: Yes (Disabling)
  Sender: FDA-Public Use
  Company Number: FR-OTSUKA-DJ20123451

PATIENT

DRUGS (4)
  1. ABILIFY [Suspect]
     Active Substance: ARIPIPRAZOLE
     Indication: BORDERLINE PERSONALITY DISORDER
     Route: 048
     Dates: start: 20120214
  2. LYSANXIA [Concomitant]
     Active Substance: PRAZEPAM
     Indication: ANXIETY
     Route: 065
     Dates: start: 20120214
  3. VALDOXAN [Concomitant]
     Active Substance: AGOMELATINE
     Indication: DEPRESSIVE SYMPTOM
     Route: 065
     Dates: start: 20120214
  4. LYSANXIA [Concomitant]
     Active Substance: PRAZEPAM
     Indication: INSOMNIA

REACTIONS (3)
  - Anorgasmia [Not Recovered/Not Resolved]
  - Off label use [Not Recovered/Not Resolved]
  - Libido decreased [Not Recovered/Not Resolved]

NARRATIVE: CASE EVENT DATE: 201203
